FAERS Safety Report 6680993-2 (Version None)
Quarter: 2010Q2

REPORT INFORMATION
  Report Type: 
  Country: None (occurrence: None)
  Receive Date: 20100414
  Receipt Date: 20100408
  Transmission Date: 20101027
  Serious: Yes (Hospitalization)
  Sender: FDA-Public Use
  Company Number: US-SANOFI-AVENTIS-2010SA021013

PATIENT
  Age: 53 Year
  Sex: Male

DRUGS (4)
  1. MULTAQ [Suspect]
     Indication: ATRIAL FIBRILLATION
     Route: 048
     Dates: start: 20100405
  2. ASPIRIN [Concomitant]
  3. LABETALOL HCL [Concomitant]
  4. PROPRANOLOL [Concomitant]

REACTIONS (3)
  - DYSSTASIA [None]
  - SPEECH DISORDER [None]
  - TRANSIENT ISCHAEMIC ATTACK [None]
